FAERS Safety Report 7263792-2 (Version None)
Quarter: 2011Q1

REPORT INFORMATION
  Report Type: 
  Country: None (occurrence: None)
  Receive Date: 20110130
  Receipt Date: 20101124
  Transmission Date: 20110831
  Serious: Yes (Hospitalization)
  Sender: FDA-Public Use
  Company Number: US-ABBOTT-10P-163-0682354-00

PATIENT
  Sex: Female
  Weight: 77.634 kg

DRUGS (4)
  1. CLEOCIN [Concomitant]
     Indication: ACNE
  2. HUMIRA [Suspect]
     Indication: CROHN'S DISEASE
     Dates: start: 20090301
  3. HUMIRA [Suspect]
     Indication: COLITIS
  4. BENZO PEROXIDE [Concomitant]
     Indication: ACNE

REACTIONS (3)
  - TUBERCULIN TEST POSITIVE [None]
  - MASTECTOMY [None]
  - LATENT TUBERCULOSIS [None]
